FAERS Safety Report 7962894-2 (Version None)
Quarter: 2011Q4

REPORT INFORMATION
  Report Type: 
  Country: None (occurrence: None)
  Receive Date: 20111207
  Receipt Date: 20111128
  Transmission Date: 20120403
  Serious: Yes (Hospitalization)
  Sender: FDA-Public Use
  Company Number: BR-ASTRAZENECA-2011SE72175

PATIENT
  Age: 56 Year
  Sex: Female
  Weight: 64 kg

DRUGS (8)
  1. ASPIRIN [Concomitant]
     Route: 048
  2. ATENOLOL [Suspect]
     Route: 048
  3. ZETIA [Concomitant]
     Route: 048
  4. METFORMIN HCL [Concomitant]
     Route: 048
  5. BRILINTA [Suspect]
     Route: 048
     Dates: start: 20111123
  6. CRESTOR [Suspect]
     Route: 048
  7. LOSARTAN POTASSIUM [Concomitant]
     Route: 048
  8. ANLODIPINE [Concomitant]
     Route: 048

REACTIONS (3)
  - INAPPROPRIATE SCHEDULE OF DRUG ADMINISTRATION [None]
  - MYOCARDIAL ISCHAEMIA [None]
  - DIARRHOEA [None]
